FAERS Safety Report 5448610-7 (Version None)
Quarter: 2007Q3

REPORT INFORMATION
  Report Type: 
  Country: None (occurrence: None)
  Receive Date: 20070906
  Receipt Date: 20070906
  Transmission Date: 20080115
  Serious: Yes (Death, Life-Threatening, Hospitalization, Other)
  Sender: FDA-Public Use
  Company Number: None

PATIENT
  Age: 38 Year
  Sex: Male
  Weight: 108.8633 kg

DRUGS (1)
  1. CYMBALTA [Suspect]
     Indication: DEPRESSION
     Dates: start: 20070605, end: 20070612

REACTIONS (2)
  - ASPHYXIA [None]
  - COMPLETED SUICIDE [None]
